FAERS Safety Report 4933048-9 (Version None)
Quarter: 2006Q1

REPORT INFORMATION
  Report Type: 
  Country: None (occurrence: None)
  Receive Date: 20060301
  Receipt Date: 20060213
  Transmission Date: 20060701
  Serious: Yes (Hospitalization)
  Sender: FDA-Public Use
  Company Number: 2005002325

PATIENT
  Age: 59 Year
  Sex: Female

DRUGS (5)
  1. TARCEVA [Suspect]
     Indication: OVARIAN CANCER
     Dosage: 150 MG (QD), ORAL
     Route: 048
     Dates: end: 20050920
  2. DIGOXIN [Concomitant]
  3. WARFARIN SODIUM [Concomitant]
  4. DILTIAZEM [Concomitant]
  5. TOPROL-XL [Concomitant]

REACTIONS (9)
  - ATRIAL FIBRILLATION [None]
  - BLOOD CREATININE INCREASED [None]
  - BLOOD PRESSURE DIASTOLIC DECREASED [None]
  - CARDIOACTIVE DRUG LEVEL INCREASED [None]
  - DEHYDRATION [None]
  - DRUG INTERACTION [None]
  - HEART RATE IRREGULAR [None]
  - INTERNATIONAL NORMALISED RATIO INCREASED [None]
  - NAUSEA [None]
